FAERS Safety Report 5901912-X (Version None)
Quarter: 2008Q3

REPORT INFORMATION
  Report Type: 
  Country: None (occurrence: None)
  Receive Date: 20080929
  Receipt Date: 20070906
  Transmission Date: 20090109
  Serious: No
  Sender: FDA-Public Use
  Company Number: US-BRISTOL-MYERS SQUIBB COMPANY-13900436

PATIENT
  Age: 71 Year
  Sex: Male
  Weight: 79 kg

DRUGS (7)
  1. BUSPAR [Suspect]
     Route: 048
  2. HYTRIN [Concomitant]
  3. TOPROL-XL [Concomitant]
  4. ASPIRIN [Concomitant]
  5. LORAZEPAM [Concomitant]
  6. PREVACID [Concomitant]
  7. PRIMIDONE [Concomitant]

REACTIONS (3)
  - ABDOMINAL PAIN UPPER [None]
  - LETHARGY [None]
  - NARCOLEPSY [None]
